FAERS Safety Report 8400638-0 (Version None)
Quarter: 2012Q2

REPORT INFORMATION
  Report Type: 
  Country: None (occurrence: None)
  Receive Date: 20120531
  Receipt Date: 20120521
  Transmission Date: 20120825
  Serious: Yes (Death, Other)
  Sender: FDA-Public Use
  Company Number: DE-ROCHE-1071078

PATIENT
  Age: 75 Year
  Sex: Female

DRUGS (1)
  1. ACTEMRA [Suspect]
     Indication: RHEUMATOID ARTHRITIS
     Dates: start: 20100401, end: 20100601

REACTIONS (4)
  - GASTRIC ULCER HAEMORRHAGE [None]
  - ESSENTIAL HYPERTENSION [None]
  - HAEMORRHAGIC ANAEMIA [None]
  - JOINT DISLOCATION [None]
